FAERS Safety Report 10745412 (Version 1)
Quarter: 2015Q1

REPORT INFORMATION
  Report Type: Spontaneous
  Country: US (occurrence: None)
  Receive Date: 20150126
  Receipt Date: 20150126
  Transmission Date: 20150721
  Serious: Yes (Hospitalization)
  Sender: FDA-Public Use
  Company Number: None

PATIENT
  Age: 57 Year
  Sex: Male

DRUGS (2)
  1. RIBASPHERE [Suspect]
     Active Substance: RIBAVIRIN
     Indication: HEPATITIS C
     Dosage: 2 PILLS
     Route: 048
  2. SOVALDI [Concomitant]
     Active Substance: SOFOSBUVIR

REACTIONS (1)
  - Blood sodium decreased [None]

NARRATIVE: CASE EVENT DATE: 20150123
